FAERS Safety Report 15167178 (Version 1)
Quarter: 2018Q3

REPORT INFORMATION
  Report Type: Report from Study
  Country: ES (occurrence: ES)
  Receive Date: 20180719
  Receipt Date: 20180719
  Transmission Date: 20181010
  Serious: Yes (Other)
  Sender: FDA-Public Use
  Company Number: ES-TEVA-2018-ES-926747

PATIENT
  Age: 41 Year
  Sex: Male

DRUGS (5)
  1. IBUPROFENO (1769A) [Suspect]
     Active Substance: IBUPROFEN
     Indication: BACK PAIN
     Dosage: 600MG EVERY 8 HOURS
     Route: 048
     Dates: start: 20170828, end: 20170915
  2. PARACETAMOL [Suspect]
     Active Substance: ACETAMINOPHEN
     Indication: BACK PAIN
     Dosage: 1GR/8H
     Route: 048
     Dates: start: 20170828, end: 20170915
  3. YURELAX [Suspect]
     Active Substance: CYCLOBENZAPRINE HYDROCHLORIDE
     Indication: BACK PAIN
     Dosage: 10 MILLIGRAM DAILY;
     Route: 048
     Dates: start: 20170828, end: 20170915
  4. METILSULFONILMETANO [Concomitant]
     Route: 048
     Dates: start: 20170601, end: 20170828
  5. CURCUMA (3386A) [Concomitant]
     Dates: start: 20170601, end: 20170828

REACTIONS (1)
  - Hepatitis acute [Recovered/Resolved]

NARRATIVE: CASE EVENT DATE: 20170915
